FAERS Safety Report 5721880-3 (Version None)
Quarter: 2008Q2

REPORT INFORMATION
  Report Type: 
  Country: None (occurrence: None)
  Receive Date: 20080429
  Receipt Date: 20080421
  Transmission Date: 20081010
  Serious: Yes (Hospitalization, Other)
  Sender: FDA-Public Use
  Company Number: SE-ABBOTT-08P-150-0448163-00

PATIENT
  Sex: Male

DRUGS (3)
  1. KLACID [Suspect]
     Indication: PROPHYLAXIS
     Route: 048
     Dates: start: 20080219
  2. ETORICOXIB [Suspect]
     Indication: PROPHYLAXIS
     Route: 048
     Dates: start: 20080219
  3. CO-DAFALGAN [Suspect]
     Indication: PROPHYLAXIS
     Route: 048
     Dates: start: 20080219

REACTIONS (3)
  - ATRIAL FIBRILLATION [None]
  - DIZZINESS [None]
  - DYSPNOEA [None]
